FAERS Safety Report 20398345 (Version 2)
Quarter: 2022Q1

REPORT INFORMATION
  Report Type: Spontaneous
  Country: US (occurrence: US)
  Receive Date: 20220131
  Receipt Date: 20220201
  Transmission Date: 20220423
  Serious: Yes (Other)
  Sender: FDA-Public Use
  Company Number: US-ABBVIE-21K-163-3866505-00

PATIENT
  Age: 60 Year
  Sex: Female

DRUGS (20)
  1. HUMIRA [Suspect]
     Active Substance: ADALIMUMAB
     Indication: Rheumatoid arthritis
     Route: 058
     Dates: start: 2018
  2. COVID/19 VACCINE [Concomitant]
     Indication: COVID-19 immunisation
     Dosage: MANUFACTURER: PFIZER
     Route: 030
     Dates: start: 20210323, end: 20210323
  3. COVID/19 VACCINE [Concomitant]
     Dosage: MANUFACTURER: PFIZER
     Route: 030
     Dates: start: 20210415, end: 20210415
  4. XANAX [Concomitant]
     Active Substance: ALPRAZOLAM
     Indication: Tremor
  5. DIPHENHYDRAMINE [Concomitant]
     Active Substance: DIPHENHYDRAMINE
     Indication: Nausea
  6. DULOXETINE [Concomitant]
     Active Substance: DULOXETINE
     Indication: Neuralgia
  7. FOLIC ACID [Concomitant]
     Active Substance: FOLIC ACID
     Indication: Rheumatoid arthritis
  8. GABAPENTIN [Concomitant]
     Active Substance: GABAPENTIN
     Indication: Neuralgia
  9. LEVOTHYROXINE [Concomitant]
     Active Substance: LEVOTHYROXINE
     Indication: Thyroid disorder
  10. REGLAN [Concomitant]
     Active Substance: METOCLOPRAMIDE HYDROCHLORIDE
     Indication: Dyspepsia
  11. METOPROLOL [Concomitant]
     Active Substance: METOPROLOL
     Indication: Blood pressure measurement
  12. NARCAN [Concomitant]
     Active Substance: NALOXONE HYDROCHLORIDE
     Indication: Hypersensitivity
  13. NORTRIPTYLINE [Concomitant]
     Active Substance: NORTRIPTYLINE
     Indication: Neuralgia
  14. PERCOCET [Concomitant]
     Active Substance: ACETAMINOPHEN\OXYCODONE HYDROCHLORIDE
     Indication: Pain
  15. PROTONIX [Concomitant]
     Active Substance: PANTOPRAZOLE SODIUM
     Indication: Gastrooesophageal reflux disease
  16. TRAMADOL [Concomitant]
     Active Substance: TRAMADOL
     Indication: Tremor
  17. REQUIP [Concomitant]
     Active Substance: ROPINIROLE HYDROCHLORIDE
     Indication: Restless legs syndrome
  18. SULFASALAZINE [Concomitant]
     Active Substance: SULFASALAZINE
     Indication: Rheumatoid arthritis
  19. VITAMIN B2 [Concomitant]
     Active Substance: RIBOFLAVIN
     Indication: Vitamin supplementation
  20. RESTORIL [Concomitant]
     Active Substance: TEMAZEPAM
     Indication: Sleep disorder

REACTIONS (4)
  - Wrist fracture [Recovering/Resolving]
  - Upper limb fracture [Recovering/Resolving]
  - Incorrect dose administered [Recovered/Resolved]
  - Device issue [Recovered/Resolved]

NARRATIVE: CASE EVENT DATE: 20210401
